FAERS Safety Report 6219451-8 (Version None)
Quarter: 2009Q2

REPORT INFORMATION
  Report Type: 
  Country: None (occurrence: None)
  Receive Date: 20090609
  Receipt Date: 20090528
  Transmission Date: 20091009
  Serious: Yes (Other)
  Sender: FDA-Public Use
  Company Number: PHHY2009BR21185

PATIENT
  Sex: Female

DRUGS (1)
  1. ZELMAC [Suspect]
     Indication: PAIN
     Dosage: 2 TAB/DAY

REACTIONS (2)
  - ABDOMINAL DISCOMFORT [None]
  - SURGERY [None]
